FAERS Safety Report 8114965-8 (Version None)
Quarter: 2012Q1

REPORT INFORMATION
  Report Type: 
  Country: None (occurrence: None)
  Receive Date: 20120206
  Receipt Date: 20120126
  Transmission Date: 20120608
  Serious: Yes (Other)
  Sender: FDA-Public Use
  Company Number: US-BRISTOL-MYERS SQUIBB COMPANY-16369647

PATIENT
  Sex: Female

DRUGS (2)
  1. GLUCOPHAGE [Suspect]
     Indication: BLOOD GLUCOSE
  2. ACTOS [Suspect]
     Indication: BLOOD GLUCOSE

REACTIONS (2)
  - BLOOD GLUCOSE INCREASED [None]
  - KNEE OPERATION [None]
